FAERS Safety Report 14031066 (Version 5)
Quarter: 2018Q1

REPORT INFORMATION
  Report Type: Spontaneous
  Country: US (occurrence: US)
  Receive Date: 20171002
  Receipt Date: 20180103
  Transmission Date: 20180508
  Serious: Yes (Hospitalization)
  Sender: FDA-Public Use
  Company Number: US-LUNDBECK-DKLU2037349

PATIENT
  Age: 69 Year
  Sex: Female
  Weight: 107 kg

DRUGS (5)
  1. NORTHERA [Suspect]
     Active Substance: DROXIDOPA
     Indication: DIZZINESS
     Route: 048
     Dates: start: 20170912, end: 20171006
  2. NORTHERA [Suspect]
     Active Substance: DROXIDOPA
     Indication: HYPOTENSION
  3. NORTHERA [Suspect]
     Active Substance: DROXIDOPA
     Indication: AUTONOMIC NEUROPATHY
     Dosage: SCHEDULE C- 100 MG TID NO TITRATION
     Route: 048
     Dates: start: 20170914, end: 20171006
  4. NORTHERA [Suspect]
     Active Substance: DROXIDOPA
     Indication: AUTONOMIC NEUROPATHY
     Route: 048
     Dates: start: 20170630, end: 20171005
  5. NORTHERA [Suspect]
     Active Substance: DROXIDOPA
     Indication: ORTHOSTATIC HYPOTENSION
     Route: 048
     Dates: start: 201709

REACTIONS (13)
  - Nephrolithiasis [Unknown]
  - Infection [Unknown]
  - Blood pressure decreased [Unknown]
  - Presyncope [Unknown]
  - Mouth ulceration [Unknown]
  - Neck pain [Unknown]
  - Drug ineffective [Unknown]
  - Asthenia [Unknown]
  - Headache [Unknown]
  - Hypotension [Unknown]
  - Limb discomfort [Unknown]
  - Swelling [Unknown]
  - Dizziness [Recovering/Resolving]

NARRATIVE: CASE EVENT DATE: 20170914
